FAERS Safety Report 8421307-7 (Version None)
Quarter: 2012Q2

REPORT INFORMATION
  Report Type: 
  Country: None (occurrence: None)
  Receive Date: 20120323
  Receipt Date: 20110913
  Transmission Date: 20120825
  Serious: Yes (Hospitalization)
  Sender: FDA-Public Use
  Company Number: 163-21880-11022269

PATIENT
  Age: 65 Year
  Sex: Male
  Weight: 112.9457 kg

DRUGS (12)
  1. ASPIRIN [Concomitant]
  2. MAGNESIUM OXIDE (MAGNESIUM OXIDE) [Concomitant]
  3. REVLIMID [Suspect]
     Indication: MULTIPLE MYELOMA
     Dosage: 25 MG, DAILY X 21 DAYS Q 28 DAY CYCLE, PO
     Route: 048
     Dates: start: 20100201
  4. OXYCODONE-ACETAMINOPHEN (OXYCOCET) [Concomitant]
  5. TOPROL-XL [Concomitant]
  6. REVLIMID [Suspect]
  7. PACKED RED BLOOD CELLS (RED BLOOD CELLS, CONCENTRATED) [Concomitant]
  8. TIKOSYN [Concomitant]
  9. MULTIVITAMIN [Concomitant]
  10. LASIX [Concomitant]
  11. DEXAMETHASONE [Concomitant]
  12. ZOMETA [Concomitant]

REACTIONS (2)
  - DIARRHOEA [None]
  - PNEUMONIA [None]
